FAERS Safety Report 7287986-5 (Version None)
Quarter: 2011Q1

REPORT INFORMATION
  Report Type: 
  Country: None (occurrence: None)
  Receive Date: 20110211
  Receipt Date: 20110201
  Transmission Date: 20110831
  Serious: Yes (Disabling, Other)
  Sender: FDA-Public Use
  Company Number: US-JNJFOC-20100101510

PATIENT
  Sex: Male
  Weight: 195.05 kg

DRUGS (11)
  1. ZETIA [Concomitant]
  2. ORENCIA [Concomitant]
  3. STELARA [Suspect]
     Route: 058
  4. STELARA [Suspect]
     Indication: PSORIASIS
     Route: 058
  5. STELARA [Suspect]
     Route: 058
  6. INSULIN [Concomitant]
  7. LASIX [Concomitant]
  8. METHOTREXATE [Concomitant]
     Indication: PSORIASIS
  9. STELARA [Suspect]
     Indication: PSORIATIC ARTHROPATHY
     Route: 058
  10. TRICOR [Concomitant]
     Route: 048
  11. VITAMIN D [Concomitant]

REACTIONS (1)
  - VIITH NERVE PARALYSIS [None]
